FAERS Safety Report 22000417 (Version 1)
Quarter: 2023Q1

REPORT INFORMATION
  Report Type: Spontaneous
  Country: US (occurrence: None)
  Receive Date: 20230215
  Receipt Date: 20230215
  Transmission Date: 20230418
  Serious: No
  Sender: FDA-Public Use
  Company Number: None

PATIENT
  Age: 43 Year
  Sex: Female
  Weight: 63 kg

DRUGS (1)
  1. EMGALITY [Suspect]
     Active Substance: GALCANEZUMAB-GNLM
     Indication: Migraine
     Dosage: FREQUENCY : MONTHLY;?OTHER ROUTE : INJECTION IN THIGH;?
     Route: 050
     Dates: start: 20230215

REACTIONS (2)
  - Injection site swelling [None]
  - Injection site urticaria [None]

NARRATIVE: CASE EVENT DATE: 20230215
